FAERS Safety Report 7053225-3 (Version None)
Quarter: 2010Q4

REPORT INFORMATION
  Report Type: 
  Country: None (occurrence: None)
  Receive Date: 20101020
  Receipt Date: 20101006
  Transmission Date: 20110411
  Serious: Yes (Other)
  Sender: FDA-Public Use
  Company Number: US-ELI_LILLY_AND_COMPANY-US201010002528

PATIENT
  Sex: Female

DRUGS (7)
  1. FORTEO [Suspect]
     Indication: OSTEOPOROSIS
     Dosage: 20 UG, DAILY (1/D)
  2. BYSTOLIC [Concomitant]
     Dosage: 5 MG, DAILY (1/D)
  3. OMEPRAZOLE [Concomitant]
     Dosage: 20 MG, 2/D
  4. OMEPRAZOLE [Concomitant]
     Dosage: 20 MG, DAILY (1/D)
  5. CARAFATE [Concomitant]
     Dosage: 1 G, 4/D
  6. CARAFATE [Concomitant]
     Dosage: 1 G, DAILY (1/D)
  7. MULTI-VITAMIN [Concomitant]

REACTIONS (9)
  - ARTHRALGIA [None]
  - CONTUSION [None]
  - FALL [None]
  - LOSS OF CONSCIOUSNESS [None]
  - MALAISE [None]
  - MYALGIA [None]
  - PAIN [None]
  - PUBIC PAIN [None]
  - PUBIS FRACTURE [None]
